FAERS Safety Report 9284385 (Version 1)
Quarter: 2013Q2

REPORT INFORMATION
  Report Type: Spontaneous
  Country: US (occurrence: US)
  Receive Date: 20130510
  Receipt Date: 20130510
  Transmission Date: 20140414
  Serious: No
  Sender: FDA-Public Use
  Company Number: US-ASTRAZENECA-2013SE26425

PATIENT
  Age: 66 Year
  Sex: Male

DRUGS (4)
  1. CRESTOR [Suspect]
     Indication: LIPIDS INCREASED
     Route: 048
  2. CRESTOR [Suspect]
     Indication: LIPIDS INCREASED
     Route: 048
  3. ZEDIA [Concomitant]
  4. WELCHOL [Concomitant]

REACTIONS (2)
  - Myalgia [Recovered/Resolved]
  - Intentional drug misuse [Unknown]
